FAERS Safety Report 9148516 (Version 2)
Quarter: 2013Q3

REPORT INFORMATION
  Report Type: Report from Study
  Country: JP (occurrence: JP)
  Receive Date: 20130308
  Receipt Date: 20130912
  Transmission Date: 20140515
  Serious: Yes (Life-Threatening, Hospitalization, Disabling, Other)
  Sender: FDA-Public Use
  Company Number: JP-009507513-2007SP022317

PATIENT
  Age: 40 Year
  Sex: Female
  Weight: 43 kg

DRUGS (20)
  1. TEMOZOLOMIDE [Suspect]
     Indication: ANAPLASTIC ASTROCYTOMA
     Dosage: 150 MG/M2, QD
     Route: 048
     Dates: start: 20061009, end: 20061013
  2. TEMOZOLOMIDE [Suspect]
     Dosage: 150 MG/M2, QD
     Route: 048
     Dates: start: 20061109, end: 20061113
  3. TEMOZOLOMIDE [Suspect]
     Dosage: 150 MG/M2, QD, CYCLE: 3-23 COOL ENFORCEMENT , ADMINISTERING FOR FIVE DAYS FOR EACH.
     Route: 048
     Dates: start: 20070222, end: 20080929
  4. TEMOZOLOMIDE [Suspect]
     Dosage: 150 MG/M2, QD
     Route: 048
     Dates: start: 20081023, end: 20081027
  5. TEMOZOLOMIDE [Suspect]
     Dosage: 150 MG/M2, QD
     Route: 048
     Dates: start: 20090105, end: 20090109
  6. TEMOZOLOMIDE [Suspect]
     Dosage: 150 MG/M2, QD
     Route: 048
     Dates: start: 20090202, end: 20090206
  7. TEMOZOLOMIDE [Suspect]
     Dosage: 150 MG/M2, QD
     Route: 048
     Dates: start: 20090304, end: 20090308
  8. TEMOZOLOMIDE [Suspect]
     Dosage: 150 MG/M2, QD
     Route: 048
     Dates: start: 20090401, end: 20090405
  9. TEMOZOLOMIDE [Suspect]
     Dosage: 150 MG/M2, QD
     Route: 048
     Dates: start: 20090429, end: 20090503
  10. TEMOZOLOMIDE [Suspect]
     Dosage: 150 MG/M2, QD
     Route: 048
     Dates: start: 20090527, end: 20090531
  11. TEMOZOLOMIDE [Suspect]
     Dosage: 150 MG/M2, QD
     Route: 048
     Dates: start: 20090624, end: 20090628
  12. TEMOZOLOMIDE [Suspect]
     Dosage: 150 MG/M2, QD
     Route: 048
     Dates: start: 20090722, end: 20090726
  13. TEMOZOLOMIDE [Suspect]
     Dosage: 150 MG/M2, QD
     Route: 048
     Dates: start: 20090819, end: 20090823
  14. TEMOZOLOMIDE [Suspect]
     Dosage: UNK
  15. ALEVIATIN [Concomitant]
     Indication: PROPHYLAXIS
     Dosage: THE DAY OF THE BEGINNING OF DOSAGE OF ALEVIATIN: BEFORE 04-OCT-2006
     Route: 048
     Dates: end: 20120909
  16. ALEVIATIN [Concomitant]
     Dosage: UNK
     Route: 048
     Dates: end: 20120909
  17. FERROMIA [Concomitant]
     Indication: PROPHYLAXIS
     Route: 048
     Dates: start: 20061127, end: 20070126
  18. KYTRIL [Concomitant]
     Route: 048
     Dates: start: 20061009, end: 20061011
  19. GASTER (FAMOTIDINE) [Concomitant]
     Indication: PROPHYLAXIS
     Dosage: UNK
     Route: 048
     Dates: start: 20061221, end: 20061226
  20. CEFAMEZIN [Concomitant]
     Indication: PROPHYLAXIS
     Dosage: UNK
     Route: 041
     Dates: start: 20061216, end: 20061217

REACTIONS (25)
  - Breast cancer [Not Recovered/Not Resolved]
  - Radiation necrosis [Recovered/Resolved with Sequelae]
  - Disease progression [Recovered/Resolved]
  - Hydrocephalus [Not Recovered/Not Resolved]
  - Brain oedema [Not Recovered/Not Resolved]
  - Eosinophil count decreased [Recovered/Resolved]
  - Basophil count decreased [Recovered/Resolved]
  - Protein total decreased [Recovered/Resolved]
  - White blood cell count increased [Recovered/Resolved]
  - C-reactive protein increased [Recovered/Resolved]
  - Purulence [Recovered/Resolved]
  - Red blood cell count decreased [Recovered/Resolved]
  - Haemoglobin decreased [Recovered/Resolved]
  - Haematocrit decreased [Recovered/Resolved]
  - Epilepsy [Recovered/Resolved]
  - White blood cell count increased [Recovered/Resolved]
  - Neutrophil count increased [Not Recovered/Not Resolved]
  - Hypercholesterolaemia [Recovered/Resolved]
  - Hypoproteinaemia [Recovered/Resolved]
  - Lymphocyte count decreased [Recovered/Resolved]
  - Vomiting [Recovered/Resolved]
  - Diarrhoea [Recovered/Resolved]
  - Gamma-glutamyltransferase increased [Recovered/Resolved]
  - Malaise [Recovered/Resolved]
  - Lymphocyte count decreased [Not Recovered/Not Resolved]
